FAERS Safety Report 5694341-8 (Version None)
Quarter: 2008Q2

REPORT INFORMATION
  Report Type: 
  Country: None (occurrence: None)
  Receive Date: 20080404
  Receipt Date: 20080325
  Transmission Date: 20081010
  Serious: Yes (Hospitalization, Other)
  Sender: FDA-Public Use
  Company Number: JP-BAYER-200815860GPV

PATIENT
  Age: 92 Year
  Sex: Female

DRUGS (1)
  1. PROSCOPE 300 (IOPROMIDE) [Suspect]
     Indication: ANGIOGRAM PERIPHERAL
     Route: 051
     Dates: start: 20080325, end: 20080325

REACTIONS (5)
  - BLOOD PRESSURE INCREASED [None]
  - DYSPNOEA [None]
  - PHARYNGEAL OEDEMA [None]
  - TACHYCARDIA [None]
  - WHEEZING [None]
